FAERS Safety Report 5127961-X (Version None)
Quarter: 2006Q4

REPORT INFORMATION
  Report Type: 
  Country: None (occurrence: None)
  Receive Date: 20061010
  Receipt Date: 20060925
  Transmission Date: 20070319
  Serious: Yes (Hospitalization)
  Sender: FDA-Public Use
  Company Number: 2006119007

PATIENT
  Age: 41 Year
  Sex: Female

DRUGS (2)
  1. ATARAX [Suspect]
     Indication: DEPRESSION
     Dosage: 250 MG, ORAL
     Route: 048
     Dates: start: 20051108, end: 20051108
  2. PAROXETINE HCL [Suspect]
     Indication: DEPRESSION
     Dosage: 1600 MG, ORAL
     Route: 048
     Dates: start: 20051108, end: 20051108

REACTIONS (5)
  - ELECTROCARDIOGRAM QT PROLONGED [None]
  - MULTIPLE DRUG OVERDOSE INTENTIONAL [None]
  - NAUSEA [None]
  - SUICIDE ATTEMPT [None]
  - VOMITING [None]
